FAERS Safety Report 15421504 (Version 1)
Quarter: 2018Q3

REPORT INFORMATION
  Report Type: Spontaneous
  Country: US (occurrence: US)
  Receive Date: 20180924
  Receipt Date: 20180924
  Transmission Date: 20181010
  Serious: No
  Sender: FDA-Public Use
  Company Number: US-ALLERGAN-1824959US

PATIENT
  Age: 76 Year
  Sex: Male

DRUGS (10)
  1. LINZESS [Suspect]
     Active Substance: LINACLOTIDE
     Indication: FLATULENCE
     Dosage: UNK
     Route: 048
     Dates: start: 201804
  2. OXYBUTYNIN. [Concomitant]
     Active Substance: OXYBUTYNIN CHLORIDE
     Indication: BLOOD DISORDER
     Dosage: 5 MG, UNK
     Route: 048
  3. CLOPIDOGREL [Concomitant]
     Active Substance: CLOPIDOGREL BISULFATE
     Indication: BLOOD CHOLESTEROL
     Dosage: 75 MG, UNK
     Route: 048
  4. SUCRALFATE. [Concomitant]
     Active Substance: SUCRALFATE
     Indication: ABDOMINAL DISCOMFORT
     Dosage: 1 MG, UNK
     Route: 048
  5. LINZESS [Suspect]
     Active Substance: LINACLOTIDE
     Indication: BOWEL MOVEMENT IRREGULARITY
  6. ATORVASTATIN [Concomitant]
     Active Substance: ATORVASTATIN
     Indication: URINE ANALYSIS ABNORMAL
     Dosage: 10 MG, UNK
     Route: 048
  7. VALSARTAN. [Concomitant]
     Active Substance: VALSARTAN
     Indication: HYPERTENSION
     Dosage: 25 MG, QD
     Route: 048
  8. FINASTERIDE. [Concomitant]
     Active Substance: FINASTERIDE
     Indication: BLOOD DISORDER
     Dosage: 5 MG, QPM
     Route: 048
  9. METOPROLOL. [Concomitant]
     Active Substance: METOPROLOL
     Indication: HYPERTENSION
     Dosage: 50 MG, UNK
     Route: 048
  10. FINASTERIDE. [Concomitant]
     Active Substance: FINASTERIDE
     Indication: URINE ANALYSIS ABNORMAL

REACTIONS (2)
  - Off label use [Unknown]
  - Drug ineffective [Unknown]

NARRATIVE: CASE EVENT DATE: 20180505
